FAERS Safety Report 10640558 (Version 1)
Quarter: 2014Q4

REPORT INFORMATION
  Report Type: Spontaneous
  Country: US (occurrence: None)
  Receive Date: 20141208
  Receipt Date: 20141208
  Transmission Date: 20150529
  Serious: No
  Sender: FDA-Public Use
  Company Number: None

PATIENT
  Age: 73 Year
  Sex: Female
  Weight: 58.97 kg

DRUGS (1)
  1. IRBESARTAN/HCTZ [Suspect]
     Active Substance: HYDROCHLOROTHIAZIDE\IRBESARTAN
     Indication: HYPERTENSION
     Dosage: 1
     Route: 048
     Dates: start: 20141129, end: 20141129

REACTIONS (6)
  - Palatal swelling [None]
  - Headache [None]
  - Product substitution issue [None]
  - Tongue disorder [None]
  - Oral mucosal blistering [None]
  - Lacrimation increased [None]

NARRATIVE: CASE EVENT DATE: 20141129
